FAERS Safety Report 6268277-8 (Version None)
Quarter: 2009Q3

REPORT INFORMATION
  Report Type: 
  Country: None (occurrence: None)
  Receive Date: 20090713
  Receipt Date: 20090713
  Transmission Date: 20100115
  Serious: Yes (Disabling)
  Sender: FDA-Public Use
  Company Number: None

PATIENT
  Age: 47 Year
  Sex: Male
  Weight: 158.759 kg

DRUGS (1)
  1. PROAIR HFA [Suspect]
     Indication: BRONCHIAL HYPERREACTIVITY
     Dosage: 2 PUFFS PRN INHAL
     Route: 055
     Dates: start: 20090709, end: 20090709

REACTIONS (2)
  - CONDITION AGGRAVATED [None]
  - RESPIRATORY DISORDER [None]
